FAERS Safety Report 10363677 (Version 1)
Quarter: 2014Q3

REPORT INFORMATION
  Report Type: Spontaneous
  Country: US (occurrence: US)
  Receive Date: 20140805
  Receipt Date: 20140805
  Transmission Date: 20150326
  Serious: Yes (Other)
  Sender: FDA-Public Use
  Company Number: US-PFIZER INC-2014216553

PATIENT
  Age: 71 Year
  Sex: Male
  Weight: 81.63 kg

DRUGS (7)
  1. GLIPIZIDE. [Concomitant]
     Active Substance: GLIPIZIDE
     Indication: DIABETES MELLITUS
     Dosage: UNK
  2. POTASSIUM CHLORIDE. [Concomitant]
     Active Substance: POTASSIUM CHLORIDE
     Dosage: 5 MG, ALTERNATE DAY
  3. LASIX [Concomitant]
     Active Substance: FUROSEMIDE
     Dosage: 20 MG, UNK
  4. WARFARIN [Concomitant]
     Active Substance: WARFARIN
     Indication: ANTICOAGULANT THERAPY
     Dosage: 5MG DAILY ALL WEEK OR 2.5 MG EVERY NOW AND THEN AS A NEEDED
  5. TIKOSYN [Concomitant]
     Active Substance: DOFETILIDE
     Dosage: 500 MG, 2X/DAY
  6. QUINAPRIL [Concomitant]
     Active Substance: QUINAPRIL\QUINAPRIL HYDROCHLORIDE
     Indication: HYPERTENSION
     Dosage: 20 MG, 1X/DAY
  7. ATORVASTATIN CALCIUM. [Suspect]
     Active Substance: ATORVASTATIN CALCIUM
     Indication: BLOOD CHOLESTEROL INCREASED
     Dosage: 40 MG, 1X/DAY

REACTIONS (3)
  - Cerebrovascular accident [Unknown]
  - Overweight [Unknown]
  - Cerebral thrombosis [Unknown]

NARRATIVE: CASE EVENT DATE: 201212
